FAERS Safety Report 9447828 (Version 1)
Quarter: 2013Q3

REPORT INFORMATION
  Report Type: Spontaneous
  Country: US (occurrence: None)
  Receive Date: 20130807
  Receipt Date: 20130807
  Transmission Date: 20140515
  Serious: No
  Sender: FDA-Public Use
  Company Number: None

PATIENT
  Age: 58 Year
  Sex: Male
  Weight: 124.74 kg

DRUGS (1)
  1. XARELTO 10MG JANSSEN [Suspect]
     Indication: ANTICOAGULANT THERAPY
     Dosage: 1 PILL ONCE DAILY TAKEN BY MOUTH
     Route: 048
     Dates: start: 20130622, end: 20130715

REACTIONS (7)
  - Headache [None]
  - Fatigue [None]
  - Fatigue [None]
  - Asthenia [None]
  - Influenza like illness [None]
  - Decreased appetite [None]
  - Nervousness [None]
